FAERS Safety Report 15990407 (Version 1)
Quarter: 2019Q1

REPORT INFORMATION
  Report Type: Spontaneous
  Country: US (occurrence: US)
  Receive Date: 20190221
  Receipt Date: 20190221
  Transmission Date: 20190418
  Serious: Yes (Other)
  Sender: FDA-Public Use
  Company Number: US-RECKITT BENCKISER HEALTHCARE INT LIMITED-RB-81501-2019

PATIENT
  Age: 37 Year
  Sex: Female

DRUGS (2)
  1. MUCINEX SINUS-MAX FULL FORCE [Suspect]
     Active Substance: OXYMETAZOLINE HYDROCHLORIDE
     Indication: SINUS CONGESTION
     Dosage: 2 TO 3 SPRAYS IN EACH NOSTRIL AT AN UNKNOWN FREQUENCY, AMOUNT USED: 2 DAYS WORTH
     Route: 045
     Dates: start: 20190201, end: 20190202
  2. IBUPROFEN. [Suspect]
     Active Substance: IBUPROFEN
     Indication: EAR PAIN
     Dosage: 400 MILLIGRAM, SINGLE
     Route: 065
     Dates: start: 20190201

REACTIONS (5)
  - Rash erythematous [Recovered/Resolved]
  - Swelling face [Recovered/Resolved]
  - Erythema [Recovered/Resolved]
  - Product label issue [Unknown]
  - Hypersensitivity [Recovered/Resolved]

NARRATIVE: CASE EVENT DATE: 20190202
